FAERS Safety Report 7096961-5 (Version None)
Quarter: 2010Q4

REPORT INFORMATION
  Report Type: 
  Country: None (occurrence: None)
  Receive Date: 20101111
  Receipt Date: 20101105
  Transmission Date: 20110411
  Serious: Yes (Death)
  Sender: FDA-Public Use
  Company Number: PHHY2010JP37823

PATIENT
  Sex: Female

DRUGS (5)
  1. ZOLEDRONATE T29581+ [Suspect]
     Indication: METASTASES TO BONE
     Dosage: 4 MG EVERY 4 WEEK
     Route: 042
     Dates: start: 20071226, end: 20080229
  2. SULPERAZON [Concomitant]
     Indication: CHOLANGITIS
     Dosage: 2 G, UNK
     Dates: start: 20071226, end: 20080112
  3. SULPERAZON [Concomitant]
     Dosage: 2 G, UNK
  4. ZOVIRAX [Concomitant]
     Indication: HERPES ZOSTER
     Dosage: 750 MG, UNK
     Dates: start: 20080311, end: 20080317
  5. TS 1 [Concomitant]
     Route: 048

REACTIONS (1)
  - MALIGNANT NEOPLASM PROGRESSION [None]
